FAERS Safety Report 5925607-1 (Version None)
Quarter: 2008Q4

REPORT INFORMATION
  Report Type: 
  Country: None (occurrence: None)
  Receive Date: 20081021
  Receipt Date: 20081016
  Transmission Date: 20090506
  Serious: Yes (Other)
  Sender: FDA-Public Use
  Company Number: A0752902A

PATIENT
  Sex: Female

DRUGS (2)
  1. BACTROBAN [Suspect]
     Route: 065
  2. RHINOCORT [Concomitant]

REACTIONS (3)
  - CLOSTRIDIAL INFECTION [None]
  - OFF LABEL USE [None]
  - THERAPEUTIC RESPONSE UNEXPECTED [None]
